FAERS Safety Report 25738539 (Version 2)
Quarter: 2025Q3

REPORT INFORMATION
  Report Type: Spontaneous
  Country: US (occurrence: US)
  Receive Date: 20250829
  Receipt Date: 20250924
  Transmission Date: 20251020
  Serious: Yes (Hospitalization)
  Sender: ABBVIE
  Company Number: US-ABBVIE-6431602

PATIENT
  Age: 22 Year
  Sex: Female

DRUGS (2)
  1. SKYRIZI [Suspect]
     Active Substance: RISANKIZUMAB-RZAA
     Indication: Psoriasis
     Route: 058
     Dates: start: 2025
  2. OTEZLA [Suspect]
     Active Substance: APREMILAST
     Indication: Psoriasis
     Route: 065

REACTIONS (4)
  - Stevens-Johnson syndrome [Recovering/Resolving]
  - Injection site rash [Recovering/Resolving]
  - Antinuclear antibody positive [Recovering/Resolving]
  - Drug intolerance [Recovering/Resolving]

NARRATIVE: CASE EVENT DATE: 20250101
